FAERS Safety Report 12690312 (Version 1)
Quarter: 2016Q3

REPORT INFORMATION
  Report Type: Spontaneous
  Country: CN (occurrence: CN)
  Receive Date: 20160826
  Receipt Date: 20160826
  Transmission Date: 20161109
  Serious: Yes (Hospitalization, Other)
  Sender: FDA-Public Use
  Company Number: CN-JNJFOC-20160821632

PATIENT
  Age: 57 Year
  Sex: Female
  Weight: 58 kg

DRUGS (2)
  1. RISPERDAL [Suspect]
     Active Substance: RISPERIDONE
     Indication: STRESS
     Route: 048
     Dates: end: 20151031
  2. RISPERDAL [Suspect]
     Active Substance: RISPERIDONE
     Indication: STRESS
     Route: 048
     Dates: start: 20070802

REACTIONS (5)
  - Product use issue [Unknown]
  - Stress [Unknown]
  - Sinus bradycardia [Recovering/Resolving]
  - Off label use [Unknown]
  - Sinus arrest [Unknown]

NARRATIVE: CASE EVENT DATE: 20151023
